FAERS Safety Report 19021142 (Version 1)
Quarter: 2021Q1

REPORT INFORMATION
  Report Type: Spontaneous
  Country: CA (occurrence: CA)
  Receive Date: 20210317
  Receipt Date: 20210317
  Transmission Date: 20210420
  Serious: Yes (Other)
  Sender: FDA-Public Use
  Company Number: CA-ALLERGAN-2111009US

PATIENT
  Sex: Female

DRUGS (1)
  1. BOTOX [Suspect]
     Active Substance: ONABOTULINUMTOXINA
     Indication: TORTICOLLIS
     Dosage: 150 UNITS, SINGLE
     Dates: start: 20201210, end: 20201210

REACTIONS (2)
  - Botulism [Recovering/Resolving]
  - Cranial nerve palsies multiple [Recovering/Resolving]

NARRATIVE: CASE EVENT DATE: 202101
